FAERS Safety Report 21602507 (Version 5)
Quarter: 2023Q1

REPORT INFORMATION
  Report Type: Spontaneous
  Country: CZ (occurrence: CZ)
  Receive Date: 20221116
  Receipt Date: 20230119
  Transmission Date: 20230417
  Serious: Yes (Death, Hospitalization, Other)
  Sender: FDA-Public Use
  Company Number: CZ-MYLANLABS-2022M1125275

PATIENT
  Age: 63 Year
  Sex: Female

DRUGS (6)
  1. PACLITAXEL [Suspect]
     Active Substance: PACLITAXEL
     Indication: Lung adenocarcinoma
     Dosage: UNK
     Route: 065
     Dates: start: 20181130, end: 20181130
  2. PACLITAXEL [Suspect]
     Active Substance: PACLITAXEL
     Indication: Sarcomatoid carcinoma of the lung
  3. PACLITAXEL [Suspect]
     Active Substance: PACLITAXEL
     Indication: Non-small cell lung cancer
  4. CARBOPLATIN [Concomitant]
     Active Substance: CARBOPLATIN
     Indication: Lung adenocarcinoma
     Dosage: UNK
     Route: 065
     Dates: start: 20181130, end: 20190207
  5. CARBOPLATIN [Concomitant]
     Active Substance: CARBOPLATIN
     Indication: Sarcomatoid carcinoma of the lung
  6. CARBOPLATIN [Concomitant]
     Active Substance: CARBOPLATIN
     Indication: Non-small cell lung cancer

REACTIONS (4)
  - Death [Fatal]
  - Diabetic ketoacidosis [Unknown]
  - Respiratory failure [Recovered/Resolved]
  - Drug hypersensitivity [Recovered/Resolved]

NARRATIVE: CASE EVENT DATE: 20181130
